FAERS Safety Report 6517476-6 (Version None)
Quarter: 2009Q4

REPORT INFORMATION
  Report Type: 
  Country: None (occurrence: None)
  Receive Date: 20091224
  Receipt Date: 20091218
  Transmission Date: 20100525
  Serious: Yes (Other)
  Sender: FDA-Public Use
  Company Number: AU-RANBAXY-2009RR-29838

PATIENT
  Age: 52 Year
  Sex: Female

DRUGS (4)
  1. CLINDAMYCIN [Suspect]
     Indication: BRAIN ABSCESS
     Dosage: 450 MG, TID
     Route: 048
  2. AMOXICILLIN [Concomitant]
     Indication: BRAIN ABSCESS
  3. WARFARIN SODIUM [Concomitant]
  4. PHENYTOIN [Concomitant]
     Indication: PROPHYLAXIS

REACTIONS (1)
  - HEPATOTOXICITY [None]
